FAERS Safety Report 21381156 (Version 1)
Quarter: 2022Q3

REPORT INFORMATION
  Report Type: Spontaneous
  Country: US (occurrence: None)
  Receive Date: 20220926
  Receipt Date: 20220926
  Transmission Date: 20221026
  Serious: Yes (Other)
  Sender: FDA-Public Use
  Company Number: None

PATIENT
  Age: 63 Year
  Sex: Male
  Weight: 74.7 kg

DRUGS (1)
  1. PAXLOVID [Suspect]
     Active Substance: NIRMATRELVIR\RITONAVIR
     Indication: COVID-19
     Dates: start: 20220905, end: 20220909

REACTIONS (6)
  - Rebound effect [None]
  - Pyrexia [None]
  - SARS-CoV-2 test positive [None]
  - COVID-19 [None]
  - Fatigue [None]
  - Nasal congestion [None]

NARRATIVE: CASE EVENT DATE: 20220916
